FAERS Safety Report 16304541 (Version 3)
Quarter: 2019Q2

REPORT INFORMATION
  Report Type: Spontaneous
  Country: PR (occurrence: PR)
  Receive Date: 20190513
  Receipt Date: 20190627
  Transmission Date: 20190711
  Serious: No
  Sender: FDA-Public Use
  Company Number: US-PFIZER INC-2019200266

PATIENT
  Age: 53 Year
  Sex: Female
  Weight: 124.2 kg

DRUGS (1)
  1. SILDENAFIL CITRATE. [Suspect]
     Active Substance: SILDENAFIL CITRATE
     Dosage: 20 MG, 2X/DAY

REACTIONS (3)
  - Nervousness [Unknown]
  - Agitation [Unknown]
  - Intentional product misuse [Unknown]
